FAERS Safety Report 23815514 (Version 2)
Quarter: 2025Q1

REPORT INFORMATION
  Report Type: Spontaneous
  Country: DE (occurrence: DE)
  Receive Date: 20240503
  Receipt Date: 20250103
  Transmission Date: 20250409
  Serious: Yes (Death, Hospitalization, Other)
  Sender: AUROBINDO
  Company Number: DE-002147023-NVSC2023DE150327

PATIENT
  Age: 83 Year
  Sex: Female
  Weight: 61.5 kg

DRUGS (10)
  1. FULVESTRANT [Suspect]
     Active Substance: FULVESTRANT
     Indication: Breast cancer metastatic
     Route: 030
     Dates: start: 20190221, end: 20230616
  2. KISQALI [Suspect]
     Active Substance: RIBOCICLIB
     Indication: Hormone receptor positive HER2 negative breast cancer
     Dosage: 600 MILLIGRAM, ONCE A DAY (SCHEMA 21 DAYS INTAKE, 7 DAYS PAUSE)
     Route: 048
     Dates: start: 20190221, end: 20190613
  3. KISQALI [Suspect]
     Active Substance: RIBOCICLIB
     Dosage: 600 MILLIGRAM, ONCE A DAY (SCHEMA 21 DAYS INTAKE, 7 DAYS PAUSE)
     Route: 048
     Dates: start: 20190624, end: 20200811
  4. KISQALI [Suspect]
     Active Substance: RIBOCICLIB
     Dosage: 600 MILLIGRAM, ONCE A DAY (SCHEMA 21 DAYS INTAKE, 7 DAYS PAUSE)
     Route: 048
     Dates: start: 20200825
  5. KISQALI [Suspect]
     Active Substance: RIBOCICLIB
     Dosage: 600 MILLIGRAM, ONCE A DAY
     Route: 065
     Dates: start: 20230323, end: 20230628
  6. FLUTICASONE PROPIONATE\SALMETEROL XINAFOATE [Concomitant]
     Active Substance: FLUTICASONE PROPIONATE\SALMETEROL XINAFOATE
     Indication: Hypertension
     Dosage: UNK UNK, ONCE A DAY (0.5/0.1 MG)
     Dates: start: 2014
  7. FLUTICASONE PROPIONATE\SALMETEROL XINAFOATE [Concomitant]
     Active Substance: FLUTICASONE PROPIONATE\SALMETEROL XINAFOATE
     Indication: Asthma
  8. MOXONIDINE [Concomitant]
     Active Substance: MOXONIDINE
     Indication: Hypertension
     Dosage: 0.2 MILLIGRAM, ONCE A DAY
     Route: 048
     Dates: start: 1998, end: 20230629
  9. CANDESARTAN CILEXETIL\HYDROCHLOROTHIAZIDE [Concomitant]
     Active Substance: CANDESARTAN CILEXETIL\HYDROCHLOROTHIAZIDE
     Indication: Hypertension
     Dosage: UNK UNK, ONCE A DAY (32/12.5 MG)
     Route: 048
     Dates: start: 1998, end: 20230629
  10. METOPROLOL [Concomitant]
     Active Substance: METOPROLOL
     Indication: Hypertension
     Dosage: 100 MILLIGRAM, ONCE A DAY
     Route: 048
     Dates: start: 1998, end: 20230629

REACTIONS (7)
  - Cardiac arrest [Fatal]
  - Myocardial ischaemia [Fatal]
  - Brain injury [Fatal]
  - Respiratory failure [Fatal]
  - Myocardial infarction [Unknown]
  - Electrocardiogram QT prolonged [Unknown]
  - Asthma [Unknown]

NARRATIVE: CASE EVENT DATE: 20230628
